FAERS Safety Report 24612721 (Version 2)
Quarter: 2024Q4

REPORT INFORMATION
  Report Type: Spontaneous
  Country: BR (occurrence: BR)
  Receive Date: 20241113
  Receipt Date: 20241114
  Transmission Date: 20250114
  Serious: Yes (Other)
  Sender: MYLAN
  Company Number: BR-MYLANLABS-2024M1100975

PATIENT
  Age: 43 Year
  Sex: Female
  Weight: 75 kg

DRUGS (4)
  1. CLOZAPINE [Suspect]
     Active Substance: CLOZAPINE
     Indication: Schizophrenia
     Dosage: UNK
     Route: 048
  2. CLOZAPINE [Suspect]
     Active Substance: CLOZAPINE
     Dosage: 700 MILLIGRAM, QD (250 MILLIGRAM IN THE MORNING, 200 MILLIGRAM IN THE AFTERNOON AND 250 MILLIGRAM AT
     Route: 048
  3. CITALOPRAM [Suspect]
     Active Substance: CITALOPRAM
     Indication: Drug metabolising enzyme decreased
     Dosage: UNK UNK, BID (TWICE A DAY)
     Route: 048
     Dates: end: 202408
  4. LAMOTRIGINE [Concomitant]
     Active Substance: LAMOTRIGINE
     Indication: Seizure prophylaxis
     Dosage: UNK UNK, BID (TWICE A DAY)
     Route: 048

REACTIONS (6)
  - Seizure [Unknown]
  - Drug metabolising enzyme decreased [Not Recovered/Not Resolved]
  - Antipsychotic drug level increased [Unknown]
  - Potentiating drug interaction [Recovered/Resolved]
  - Drug ineffective [Unknown]
  - Product availability issue [Unknown]

NARRATIVE: CASE EVENT DATE: 20240801
